FAERS Safety Report 7322462-2 (Version None)
Quarter: 2011Q1

REPORT INFORMATION
  Report Type: 
  Country: None (occurrence: None)
  Receive Date: 20110125
  Receipt Date: 20100827
  Transmission Date: 20110831
  Serious: No
  Sender: FDA-Public Use
  Company Number: US-003628

PATIENT
  Sex: Male
  Weight: 83.4619 kg

DRUGS (8)
  1. FIRMAGON [Suspect]
     Dosage: (240 MG 1X SUBCUTANEOUS), (80 MG 1X/MONTH SUBCUTANEOUS)
     Route: 058
     Dates: start: 20100610, end: 20100610
  2. FIRMAGON [Suspect]
     Dosage: (240 MG 1X SUBCUTANEOUS), (80 MG 1X/MONTH SUBCUTANEOUS)
     Route: 058
     Dates: start: 20100708
  3. MULTI-VITAMINS [Concomitant]
  4. ASA [Concomitant]
  5. LIPITOR [Concomitant]
  6. LOTENSIN /00909102/ [Concomitant]
  7. PAXIL [Concomitant]
  8. FISH OIL [Concomitant]

REACTIONS (1)
  - BLOOD TRIGLYCERIDES INCREASED [None]
